FAERS Safety Report 15935917 (Version 1)
Quarter: 2019Q1

REPORT INFORMATION
  Report Type: Spontaneous
  Country: US (occurrence: US)
  Receive Date: 20190208
  Receipt Date: 20190208
  Transmission Date: 20190417
  Serious: Yes (Other)
  Sender: FDA-Public Use
  Company Number: US-AUROBINDO-AUR-APL-2019-004832

PATIENT

DRUGS (8)
  1. DEXAMETHASONE. [Suspect]
     Active Substance: DEXAMETHASONE
     Dosage: UNK
     Route: 065
     Dates: start: 20100316, end: 20110501
  2. ALBENDAZOLE. [Concomitant]
     Active Substance: ALBENDAZOLE
     Indication: NEUROCYSTICERCOSIS
     Dosage: UNK
     Route: 065
  3. BACTRIM [Concomitant]
     Active Substance: SULFAMETHOXAZOLE\TRIMETHOPRIM
     Indication: ANTIFUNGAL PROPHYLAXIS
     Dosage: UNK
     Route: 065
  4. PRAZIQUANTEL. [Concomitant]
     Active Substance: PRAZIQUANTEL
     Indication: NEUROCYSTICERCOSIS
     Dosage: UNK
     Route: 065
  5. DEXAMETHASONE. [Suspect]
     Active Substance: DEXAMETHASONE
     Indication: NEUROCYSTICERCOSIS
     Dosage: UNK
     Route: 065
     Dates: start: 20050101, end: 20050606
  6. DEXAMETHASONE. [Suspect]
     Active Substance: DEXAMETHASONE
     Dosage: UNK
     Route: 065
     Dates: start: 20081001, end: 20090401
  7. DEXAMETHASONE. [Suspect]
     Active Substance: DEXAMETHASONE
     Dosage: UNK
     Route: 065
     Dates: start: 20080603
  8. METHOTREXATE. [Concomitant]
     Active Substance: METHOTREXATE
     Indication: NEUROCYSTICERCOSIS
     Dosage: UNK
     Route: 065

REACTIONS (3)
  - Myopathy [Unknown]
  - Osteonecrosis [Unknown]
  - Steroid diabetes [Unknown]
